FAERS Safety Report 18980882 (Version 1)
Quarter: 2021Q1

REPORT INFORMATION
  Report Type: Spontaneous
  Country: US (occurrence: US)
  Receive Date: 20210308
  Receipt Date: 20210308
  Transmission Date: 20210420
  Serious: Yes (Other)
  Sender: FDA-Public Use
  Company Number: US-CADILA HEALTHCARE LIMITED-US-ZYDUS-062523

PATIENT

DRUGS (2)
  1. ACICLOVIR [Concomitant]
     Active Substance: ACYCLOVIR
     Indication: INFLUENZA
     Dosage: UNK
  2. OSELTAMIVIR PHOSPHATE. [Suspect]
     Active Substance: OSELTAMIVIR PHOSPHATE
     Indication: INFLUENZA
     Dosage: UNK
     Route: 048

REACTIONS (1)
  - Colitis ischaemic [Unknown]
